FAERS Safety Report 18316177 (Version 1)
Quarter: 2020Q3

REPORT INFORMATION
  Report Type: Spontaneous
  Country: CN (occurrence: CN)
  Receive Date: 20200927
  Receipt Date: 20200927
  Transmission Date: 20201103
  Serious: Yes (Other)
  Sender: FDA-Public Use
  Company Number: CN-JIANGSU HENGRUI MEDICINE CO., LTD.-2091199

PATIENT
  Age: 26 Year
  Sex: Female
  Weight: 55 kg

DRUGS (3)
  1. DEXMEDETOMIDINE HYDROCHLORIDE INJECTION, 200 MCG/2 ML (100 MCG/ML) SIN [Suspect]
     Active Substance: DEXMEDETOMIDINE HYDROCHLORIDE
     Indication: LOCAL ANAESTHESIA
     Dates: start: 20200821, end: 20200821
  2. ROPIVACAINE HYDROCHLORIDE INJECTION [Suspect]
     Active Substance: ROPIVACAINE HYDROCHLORIDE
     Dates: start: 20200821, end: 20200821
  3. DILUENT (SODIUM CHLORIDE) [Concomitant]
     Active Substance: SODIUM CHLORIDE
     Route: 041
     Dates: start: 20200821, end: 20200821

REACTIONS (2)
  - Muscle twitching [Recovering/Resolving]
  - Generalised tonic-clonic seizure [Recovering/Resolving]

NARRATIVE: CASE EVENT DATE: 20200821
